FAERS Safety Report 10145023 (Version 1)
Quarter: 2014Q2

REPORT INFORMATION
  Report Type: Spontaneous
  Country: IL (occurrence: IL)
  Receive Date: 20140501
  Receipt Date: 20140501
  Transmission Date: 20141212
  Serious: Yes (Other)
  Sender: FDA-Public Use
  Company Number: IL-AMGEN INC.-ISRSP2014031259

PATIENT
  Age: 23 Year
  Sex: Female

DRUGS (1)
  1. ENBREL [Suspect]
     Indication: PSORIASIS
     Dosage: UNK
     Route: 065
     Dates: start: 20140428

REACTIONS (1)
  - Loss of consciousness [Recovering/Resolving]
